FAERS Safety Report 5361292-8 (Version None)
Quarter: 2007Q2

REPORT INFORMATION
  Report Type: 
  Country: None (occurrence: None)
  Receive Date: 20070614
  Receipt Date: 20070530
  Transmission Date: 20071010
  Serious: Yes (Hospitalization)
  Sender: FDA-Public Use
  Company Number: DSJ-2007-02706

PATIENT
  Age: 76 Year
  Sex: Female
  Weight: 52 kg

DRUGS (10)
  1. OLMETEC(OLMESARTAN MEDOXOMIL) (TABLET) (OLMESARTAN MEDOXOMIL) [Suspect]
     Indication: ESSENTIAL HYPERTENSION
     Dosage: 20 MG (20 MG, 1 IN 1 D), PER ORAL
     Route: 048
     Dates: start: 20060906
  2. GLIMICRON (GLICLAZIDE) (TABLET) (GLICLAZIDE) [Concomitant]
  3. THYRADIN (THYROID)- (TABLET) (THYROID) [Concomitant]
  4. ITOROL (ISOSORBIDE MONONITRATE) (TABLET) (ISOSORBIDE MONONITRATE) [Concomitant]
  5. BAYASPIRIN (ACETYLSALICYLIC ACID) (TABLET) (ACETYLSALICYLIC ACID) [Concomitant]
  6. CONIEL (BENIDIPINE HYDROCHLORIDE) (TABLET) (BENIDIPINE HYDROCHLORIDE) [Concomitant]
  7. HALCION (TRIAZOLAM) (TABLET) (TRIAZOLAM) [Concomitant]
  8. LAC B (LACTOBACILLUS BIFIDUS, LYOPHILIZED) (LACTOBACILLUS BIFIDUS, LYO [Concomitant]
  9. TRANCOLON (MEPENZOLATE BROMIDE) (TABLET) (MEPENZOLATE BROMIDE) [Concomitant]
  10. LIVALO (TABLET) [Concomitant]

REACTIONS (4)
  - CONDITION AGGRAVATED [None]
  - DIABETES MELLITUS INADEQUATE CONTROL [None]
  - GLYCOSYLATED HAEMOGLOBIN INCREASED [None]
  - HYPERPHAGIA [None]
